FAERS Safety Report 25390107 (Version 3)
Quarter: 2025Q3

REPORT INFORMATION
  Report Type: Spontaneous
  Country: US (occurrence: US)
  Receive Date: 20250603
  Receipt Date: 20250922
  Transmission Date: 20251020
  Serious: Yes (Hospitalization)
  Sender: SAREPTA THERAPEUTICS
  Company Number: US-SAREPTA THERAPEUTICS INC.-SRP2025-006050

PATIENT
  Age: 22 Year
  Sex: Male
  Weight: 90.703 kg

DRUGS (11)
  1. EXONDYS 51 [Suspect]
     Active Substance: ETEPLIRSEN
     Indication: Duchenne muscular dystrophy
     Route: 042
     Dates: start: 20171031
  2. RANITIDINE [Concomitant]
     Active Substance: RANITIDINE
     Indication: Product used for unknown indication
     Dosage: 150 MILLIGRAM, QD
     Route: 048
     Dates: start: 20180115
  3. COREG [Concomitant]
     Active Substance: CARVEDILOL
     Indication: Product used for unknown indication
     Dosage: 3.125 MILLIGRAM, BID
     Route: 048
     Dates: start: 20180115
  4. COREG [Concomitant]
     Active Substance: CARVEDILOL
     Dosage: 12.5 MILLIGRAM, BID
     Route: 048
     Dates: start: 20180115
  5. LISINOPRIL [Concomitant]
     Active Substance: LISINOPRIL
     Indication: Product used for unknown indication
     Dosage: 10 MILLIGRAM, QD
     Route: 048
     Dates: start: 20180115
  6. DEFLAZACORT [Concomitant]
     Active Substance: DEFLAZACORT
     Indication: Product used for unknown indication
     Dosage: 36 MILLIGRAM, QD
     Route: 048
     Dates: start: 20180115
  7. VITAMIN D3 [Concomitant]
     Active Substance: CHOLECALCIFEROL
     Indication: Product used for unknown indication
     Dosage: 4000 INTERNATIONAL UNIT, QD
     Route: 048
     Dates: start: 20180115
  8. PREDNISONE [Concomitant]
     Active Substance: PREDNISONE
     Indication: Product used for unknown indication
     Dosage: 30 MILLIGRAM, QD
     Route: 048
  9. FLOMAX [Concomitant]
     Active Substance: TAMSULOSIN HYDROCHLORIDE
     Indication: Product used for unknown indication
     Dosage: 0.4 MILLIGRAM, QD
     Route: 048
  10. FAMOTIDINE [Concomitant]
     Active Substance: FAMOTIDINE
     Indication: Product used for unknown indication
     Dosage: 40 MILLIGRAM, QD
     Route: 048
  11. CITALOPRAM [Concomitant]
     Active Substance: CITALOPRAM
     Indication: Product used for unknown indication
     Dosage: 30 MILLIGRAM, QD
     Route: 048

REACTIONS (13)
  - Acute respiratory failure [Recovering/Resolving]
  - Pneumonia [Unknown]
  - Femoral neck fracture [Unknown]
  - Fat embolism [Unknown]
  - Blood creatine decreased [Unknown]
  - Leukocytosis [Unknown]
  - Normocytic anaemia [Unknown]
  - Alanine aminotransferase increased [Unknown]
  - Aspartate aminotransferase increased [Unknown]
  - Hypoalbuminaemia [Unknown]
  - Pleural effusion [Unknown]
  - Functional gastrointestinal disorder [Unknown]
  - Bedridden [Unknown]

NARRATIVE: CASE EVENT DATE: 20250301
